FAERS Safety Report 5872464-8 (Version None)
Quarter: 2008Q3

REPORT INFORMATION
  Report Type: 
  Country: None (occurrence: None)
  Receive Date: 20080905
  Receipt Date: 20080828
  Transmission Date: 20090109
  Serious: Yes (Hospitalization, Other)
  Sender: FDA-Public Use
  Company Number: PHHY2008DE17791

PATIENT
  Sex: Female
  Weight: 65 kg

DRUGS (4)
  1. EXELON [Suspect]
     Indication: DEMENTIA ALZHEIMER'S TYPE
     Dosage: 4.6MG/24/HOUR
     Route: 062
     Dates: start: 20080724, end: 20080725
  2. ARICEPT [Concomitant]
     Indication: DEMENTIA
     Dosage: 10 MG
     Route: 048
  3. LEVOTHYROXINE SODIUM [Concomitant]
     Dosage: UNK
     Route: 048
     Dates: start: 20080109
  4. GINKGO [Concomitant]
     Dosage: UNK
     Route: 048
     Dates: start: 20080509

REACTIONS (8)
  - BLOOD GLUCOSE INCREASED [None]
  - BRADYCARDIA [None]
  - DIZZINESS [None]
  - GASTRIC DISORDER [None]
  - MUSCLE SPASMS [None]
  - NAUSEA [None]
  - PARAESTHESIA [None]
  - VOMITING [None]
